FAERS Safety Report 4881477-4 (Version None)
Quarter: 2006Q1

REPORT INFORMATION
  Report Type: 
  Country: None (occurrence: None)
  Receive Date: 20060116
  Receipt Date: 20041115
  Transmission Date: 20060701
  Serious: Yes (Death, Hospitalization)
  Sender: FDA-Public Use
  Company Number: PHHO2004JP16176

PATIENT
  Age: 75 Year
  Sex: Male

DRUGS (4)
  1. MEVALOTIN [Concomitant]
     Indication: HYPERCHOLESTEROLAEMIA
  2. DAONIL [Concomitant]
     Indication: DIABETES MELLITUS
  3. DIOVAN [Suspect]
     Indication: HYPERTENSION
     Dosage: 40 MG, QD
     Route: 048
     Dates: start: 20021101, end: 20050327
  4. TORSEMIDE [Concomitant]

REACTIONS (7)
  - CARDIAC FAILURE [None]
  - CARDIO-RESPIRATORY ARREST [None]
  - EXTRASYSTOLES [None]
  - ISCHAEMIC CARDIOMYOPATHY [None]
  - ORTHOPNOEA [None]
  - VENTRICULAR DYSFUNCTION [None]
  - WHEEZING [None]
